FAERS Safety Report 4795097-3 (Version None)
Quarter: 2005Q4

REPORT INFORMATION
  Report Type: 
  Country: None (occurrence: None)
  Receive Date: 20051012
  Receipt Date: 20050926
  Transmission Date: 20060501
  Serious: Yes (Hospitalization, Other)
  Sender: FDA-Public Use
  Company Number: BE-BRISTOL-MYERS SQUIBB COMPANY-13140793

PATIENT
  Age: 53 Year
  Sex: Female

DRUGS (3)
  1. IFOSFAMIDE [Suspect]
     Indication: CERVIX CARCINOMA
  2. CISPLATIN [Suspect]
     Indication: CERVIX CARCINOMA
  3. BLEOMYCIN [Suspect]
     Indication: CERVIX CARCINOMA

REACTIONS (2)
  - FANCONI SYNDROME [None]
  - OSTEOMALACIA [None]
